FAERS Safety Report 7604198-3 (Version None)
Quarter: 2011Q3

REPORT INFORMATION
  Report Type: 
  Country: None (occurrence: None)
  Receive Date: 20110712
  Receipt Date: 20110707
  Transmission Date: 20111222
  Serious: Yes (Hospitalization, Disabling, Other)
  Sender: FDA-Public Use
  Company Number: US-MERCK-0606USA04503

PATIENT
  Age: 57 Year
  Sex: Male
  Weight: 123 kg

DRUGS (25)
  1. GLUCOTROL [Concomitant]
     Route: 048
  2. NUTRITIONAL SUPPLEMENTS [Concomitant]
     Route: 065
  3. FLOMAX [Concomitant]
     Route: 065
  4. INFLUENZA VIRUS VACCINE (UNSPECIFIED) [Concomitant]
     Route: 065
     Dates: start: 20031118
  5. COZAAR [Concomitant]
     Route: 048
  6. TYLENOL-500 [Concomitant]
     Route: 048
  7. ASPIRIN [Concomitant]
     Route: 048
  8. ULTRAM [Concomitant]
     Route: 048
  9. GLUCOTROL XL [Concomitant]
     Route: 065
  10. LODINE [Concomitant]
     Route: 065
  11. [THERAPY UNSPECIFIED] [Concomitant]
     Route: 065
  12. VICODIN [Concomitant]
     Indication: PAIN
     Route: 065
  13. MOTRIN [Concomitant]
     Route: 065
     Dates: end: 19990601
  14. IBUPROFEN [Concomitant]
     Route: 065
  15. LODINE XL [Concomitant]
     Route: 048
  16. NEURONTIN [Concomitant]
     Route: 065
  17. VITAMIN E [Concomitant]
     Route: 065
  18. VIOXX [Suspect]
     Route: 048
  19. LORAZEPAM [Concomitant]
     Route: 065
  20. AVANDIA [Concomitant]
     Route: 065
  21. GLUCOPHAGE [Concomitant]
     Route: 065
  22. SONATA [Concomitant]
     Route: 065
  23. PRANDIN [Concomitant]
     Route: 048
  24. CYANOCOBALAMIN [Concomitant]
     Route: 065
  25. TRICOR [Concomitant]
     Route: 048

REACTIONS (92)
  - ARTERIOSCLEROSIS [None]
  - ATRIAL FIBRILLATION [None]
  - BACK DISORDER [None]
  - ANXIETY [None]
  - CHRONIC SINUSITIS [None]
  - CATARACT [None]
  - FALL [None]
  - DRUG INEFFECTIVE [None]
  - PULMONARY MASS [None]
  - PRURITUS [None]
  - RADICULITIS LUMBOSACRAL [None]
  - COLON ADENOMA [None]
  - BORDERLINE GLAUCOMA [None]
  - ESSENTIAL HYPERTENSION [None]
  - CHALAZION [None]
  - FATIGUE [None]
  - HAEMORRHOIDS [None]
  - DERMAL CYST [None]
  - MUSCLE STRAIN [None]
  - SPINAL OSTEOARTHRITIS [None]
  - IRRITABILITY [None]
  - BENIGN PROSTATIC HYPERPLASIA [None]
  - TINNITUS [None]
  - THYROID ADENOMA [None]
  - TACHYCARDIA [None]
  - SPINAL DISORDER [None]
  - NECK PAIN [None]
  - INTERVERTEBRAL DISC PROTRUSION [None]
  - INTERTRIGO [None]
  - METAMORPHOPSIA [None]
  - DIABETIC NEUROPATHY [None]
  - AORTIC CALCIFICATION [None]
  - PNEUMONIA [None]
  - PANCREATIC PSEUDOCYST [None]
  - OTITIS MEDIA [None]
  - OSTEOARTHRITIS [None]
  - STRESS [None]
  - RENAL CYST [None]
  - DERMATITIS ATOPIC [None]
  - ECZEMA [None]
  - LUMBAR RADICULOPATHY [None]
  - LEFT VENTRICULAR HYPERTROPHY [None]
  - PANCREATIC MASS [None]
  - RECTAL POLYP [None]
  - HIATUS HERNIA [None]
  - DERMATITIS CONTACT [None]
  - ATELECTASIS [None]
  - SPONDYLOLISTHESIS [None]
  - ADVERSE EVENT [None]
  - BENIGN NEOPLASM [None]
  - BRONCHIAL DISORDER [None]
  - HEPATIC STEATOSIS [None]
  - LUNG NEOPLASM [None]
  - GOITRE [None]
  - URTICARIA [None]
  - SINUS TACHYCARDIA [None]
  - HYPOAESTHESIA [None]
  - COMMINUTED FRACTURE [None]
  - AORTIC ARTERIOSCLEROSIS [None]
  - PANCREATITIS [None]
  - BREAST CYST [None]
  - CAROTID BRUIT [None]
  - POST LAMINECTOMY SYNDROME [None]
  - PANCREATIC CYST [None]
  - SLEEP APNOEA SYNDROME [None]
  - LYMPHADENOPATHY [None]
  - INSOMNIA [None]
  - DIABETES MELLITUS INADEQUATE CONTROL [None]
  - INTERVERTEBRAL DISC DEGENERATION [None]
  - LUMBAR SPINAL STENOSIS [None]
  - CELLULITIS [None]
  - NEPHROLITHIASIS [None]
  - ANGIOPATHY [None]
  - MUSCULOSKELETAL PAIN [None]
  - SACROILIITIS [None]
  - ORGASMIC SENSATION DECREASED [None]
  - MICTURITION URGENCY [None]
  - HYPERTRIGLYCERIDAEMIA [None]
  - HEADACHE [None]
  - SYNOVIAL CYST [None]
  - DELIRIUM [None]
  - MYOCARDIAL INFARCTION [None]
  - DIABETIC RETINOPATHY [None]
  - EXOSTOSIS [None]
  - RENAL FAILURE CHRONIC [None]
  - OEDEMA PERIPHERAL [None]
  - LEFT ATRIAL DILATATION [None]
  - UPPER RESPIRATORY TRACT INFECTION [None]
  - MUSCLE SPASMS [None]
  - NASAL SEPTUM DEVIATION [None]
  - MOOD SWINGS [None]
  - BILE DUCT STONE [None]
